FAERS Safety Report 5802751-0 (Version None)
Quarter: 2008Q3

REPORT INFORMATION
  Report Type: 
  Country: None (occurrence: None)
  Receive Date: 20080708
  Receipt Date: 20080625
  Transmission Date: 20090109
  Serious: Yes (Death)
  Sender: FDA-Public Use
  Company Number: MX-NOVOPROD-275747

PATIENT
  Age: 84 Year
  Sex: Female
  Weight: 68 kg

DRUGS (4)
  1. LEVEMIR [Suspect]
     Indication: TYPE 2 DIABETES MELLITUS
     Dates: start: 20071226
  2. AMIDARONE [Concomitant]
     Dosage: 200 MG, QD
     Route: 048
  3. FUROSEMIDE [Concomitant]
     Dosage: 60 MG, QD
     Route: 048
  4. ALPRAZOLAM [Concomitant]
     Dosage: .25 MG, QD
     Route: 048

REACTIONS (1)
  - BILE DUCT CANCER [None]
